FAERS Safety Report 4840198-4 (Version None)
Quarter: 2005Q4

REPORT INFORMATION
  Report Type: 
  Country: None (occurrence: None)
  Receive Date: 20051125
  Receipt Date: 20051111
  Transmission Date: 20060501
  Serious: Yes (Hospitalization)
  Sender: FDA-Public Use
  Company Number: 178161

PATIENT
  Age: 58 Year
  Sex: Male

DRUGS (1)
  1. AVONEX [Suspect]
     Indication: MULTIPLE SCLEROSIS
     Dosage: 30 UG; QW; IM
     Route: 030
     Dates: start: 19970801

REACTIONS (5)
  - APPENDICITIS [None]
  - CONDITION AGGRAVATED [None]
  - FACIAL PALSY [None]
  - HEMIPLEGIA [None]
  - MULTIPLE SCLEROSIS [None]
